FAERS Safety Report 18523293 (Version 3)
Quarter: 2021Q1

REPORT INFORMATION
  Report Type: Spontaneous
  Country: US (occurrence: US)
  Receive Date: 20201119
  Receipt Date: 20210104
  Transmission Date: 20210419
  Serious: No
  Sender: FDA-Public Use
  Company Number: US-JNJFOC-20201109544

PATIENT
  Age: 75 Year
  Sex: Female

DRUGS (1)
  1. TREMFYA [Suspect]
     Active Substance: GUSELKUMAB
     Indication: PSORIATIC ARTHROPATHY
     Route: 058
     Dates: start: 20201102

REACTIONS (3)
  - Underdose [Unknown]
  - Accidental exposure to product [Recovered/Resolved]
  - Drug delivery system malfunction [Unknown]

NARRATIVE: CASE EVENT DATE: 20201102
